FAERS Safety Report 9021388 (Version 1)
Quarter: 2013Q1

REPORT INFORMATION
  Report Type: Spontaneous
  Country: US (occurrence: US)
  Receive Date: 20130119
  Receipt Date: 20130119
  Transmission Date: 20140127
  Serious: No
  Sender: FDA-Public Use
  Company Number: US-ALLERGAN-1200596US

PATIENT
  Sex: Female

DRUGS (2)
  1. BOTOX COSMETIC [Suspect]
     Indication: SKIN WRINKLING
     Dosage: 32 UNITS, SINGLE 24 GLABELLAR AND 8 TO FOREHEAD
     Route: 030
     Dates: start: 20111213, end: 20111213
  2. PROZAC                             /00724401/ [Concomitant]
     Dosage: UNK

REACTIONS (1)
  - Eyelid ptosis [Recovering/Resolving]
